FAERS Safety Report 12349704 (Version 1)
Quarter: 2016Q2

REPORT INFORMATION
  Report Type: Spontaneous
  Country: IN (occurrence: IN)
  Receive Date: 20160510
  Receipt Date: 20160510
  Transmission Date: 20160815
  Serious: Yes (Life-Threatening, Hospitalization)
  Sender: FDA-Public Use
  Company Number: IN-ACCORD-040186

PATIENT
  Age: 25 Year
  Sex: Female
  Weight: 35 kg

DRUGS (2)
  1. METHOTREXATE [Suspect]
     Active Substance: METHOTREXATE
     Indication: ECTOPIC PREGNANCY
     Dosage: ON DAYS 1, 3, 5 AND 7
     Route: 030
  2. FOLINIC ACID [Concomitant]
     Active Substance: LEUCOVORIN
     Dosage: ON DAYS 2, 4, 6 AND 8
     Route: 030

REACTIONS (18)
  - Conjunctival haemorrhage [Not Recovered/Not Resolved]
  - Ascites [Recovered/Resolved]
  - Mitral valve stenosis [Unknown]
  - Melaena [Unknown]
  - Klebsiella infection [Unknown]
  - Maternal exposure during pregnancy [Unknown]
  - Pigmentation disorder [Not Recovered/Not Resolved]
  - Sepsis [Recovered/Resolved]
  - Shock [Unknown]
  - Vomiting [Unknown]
  - Candida infection [Unknown]
  - Bone marrow failure [Recovered/Resolved]
  - Aortic valve incompetence [Unknown]
  - Acinetobacter infection [Unknown]
  - Toxicity to various agents [Unknown]
  - Mouth ulceration [Unknown]
  - Abdominal distension [Unknown]
  - Rheumatic heart disease [Unknown]

NARRATIVE: CASE EVENT DATE: 20111210
